FAERS Safety Report 17515191 (Version 1)
Quarter: 2020Q1

REPORT INFORMATION
  Report Type: Spontaneous
  Country: US (occurrence: US)
  Receive Date: 20200309
  Receipt Date: 20200309
  Transmission Date: 20200409
  Serious: Yes (Disabling)
  Sender: FDA-Public Use
  Company Number: US-ABBVIE-20K-163-3308082-00

PATIENT

DRUGS (1)
  1. IMBRUVICA [Suspect]
     Active Substance: IBRUTINIB
     Indication: CHRONIC LYMPHOCYTIC LEUKAEMIA
     Route: 048
     Dates: start: 201809

REACTIONS (6)
  - Fatigue [Unknown]
  - Headache [Unknown]
  - Spinal fracture [Unknown]
  - Psoriatic arthropathy [Unknown]
  - Bone pain [Recovered/Resolved]
  - Type 2 diabetes mellitus [Unknown]
